FAERS Safety Report 7311333-3 (Version None)
Quarter: 2011Q1

REPORT INFORMATION
  Report Type: 
  Country: None (occurrence: None)
  Receive Date: 20110224
  Receipt Date: 20110217
  Transmission Date: 20110831
  Serious: Yes (Death, Hospitalization)
  Sender: FDA-Public Use
  Company Number: BR-ACTELION-A-CH2011-45339

PATIENT
  Age: 28 Year

DRUGS (1)
  1. TRACLEER [Suspect]
     Dosage: UNK
     Route: 048

REACTIONS (2)
  - RENAL FAILURE [None]
  - SEPSIS [None]
